FAERS Safety Report 4334527-8 (Version None)
Quarter: 2004Q2

REPORT INFORMATION
  Report Type: 
  Country: None (occurrence: None)
  Receive Date: 20040405
  Receipt Date: 20040325
  Transmission Date: 20050107
  Serious: Yes (Other)
  Sender: FDA-Public Use
  Company Number: 200411469BCC

PATIENT
  Age: 59 Year
  Sex: Male
  Weight: 92.9874 kg

DRUGS (8)
  1. ALEVE (CAPLET) [Suspect]
     Indication: MIGRAINE
     Dosage: PRN, ORAL
     Route: 048
  2. TOPROL-XL [Concomitant]
  3. PRAVACHOL [Concomitant]
  4. NORTRIPTYLINE HCL [Concomitant]
  5. ENALAPRIL MALEATE [Concomitant]
  6. FIORICET [Concomitant]
  7. ZOMIG [Concomitant]
  8. SLEEP AID [Concomitant]

REACTIONS (1)
  - SYNCOPE [None]
